FAERS Safety Report 9542343 (Version 3)
Quarter: 2013Q4

REPORT INFORMATION
  Report Type: Spontaneous
  Country: US (occurrence: US)
  Receive Date: 20130923
  Receipt Date: 20131003
  Transmission Date: 20140711
  Serious: Yes (Hospitalization, Other)
  Sender: FDA-Public Use
  Company Number: US-ABBVIE-13P-163-1143804-00

PATIENT
  Sex: 0

DRUGS (3)
  1. HUMIRA [Suspect]
     Indication: MATERNAL EXPOSURE TIMING UNSPECIFIED
     Route: 064
  2. HUMIRA [Suspect]
     Route: 063
  3. MIRALAX [Concomitant]
     Indication: PRODUCT USED FOR UNKNOWN INDICATION

REACTIONS (13)
  - Urethral valves [Recovered/Resolved]
  - Foetal distress syndrome [Not Recovered/Not Resolved]
  - Vesicoureteric reflux [Not Recovered/Not Resolved]
  - Bladder disorder [Not Recovered/Not Resolved]
  - Hydronephrosis [Not Recovered/Not Resolved]
  - Ureteral disorder [Not Recovered/Not Resolved]
  - Middle ear effusion [Unknown]
  - Developmental delay [Not Recovered/Not Resolved]
  - Premature baby [Not Recovered/Not Resolved]
  - Foetal heart rate decreased [Recovered/Resolved]
  - Exposure during breast feeding [Unknown]
  - Foetal exposure during pregnancy [Unknown]
  - Laryngomalacia [Not Recovered/Not Resolved]
